FAERS Safety Report 7560534-8 (Version None)
Quarter: 2011Q2

REPORT INFORMATION
  Report Type: 
  Country: None (occurrence: None)
  Receive Date: 20110621
  Receipt Date: 20110602
  Transmission Date: 20111010
  Serious: No
  Sender: FDA-Public Use
  Company Number: US-B.I. PHARMACEUTICALS,INC./RIDGEFIELD-2011-BP-14547BP

PATIENT
  Age: 84 Year
  Sex: Female

DRUGS (3)
  1. MEDICATION NOT FURTHER SPECIFIED [Concomitant]
  2. PRADAXA [Suspect]
     Indication: ATRIAL FIBRILLATION
     Dosage: 300 MG
     Route: 048
     Dates: start: 20101201
  3. PACERONE [Concomitant]
     Indication: ATRIAL FIBRILLATION

REACTIONS (5)
  - RECTAL HAEMORRHAGE [None]
  - DIZZINESS [None]
  - CONTUSION [None]
  - RASH MACULAR [None]
  - HEADACHE [None]
